FAERS Safety Report 19435901 (Version 1)
Quarter: 2021Q2

REPORT INFORMATION
  Report Type: Spontaneous
  Country: US (occurrence: US)
  Receive Date: 20210618
  Receipt Date: 20210618
  Transmission Date: 20210717
  Serious: No
  Sender: FDA-Public Use
  Company Number: US-CADILA HEALTHCARE LIMITED-US-ZYDUS-062725

PATIENT

DRUGS (1)
  1. ATORVASTATIN TABLET [Suspect]
     Active Substance: ATORVASTATIN
     Indication: CORONARY ANGIOPLASTY

REACTIONS (1)
  - Product dose omission issue [Unknown]
